FAERS Safety Report 4685938-2 (Version None)
Quarter: 2005Q2

REPORT INFORMATION
  Report Type: 
  Country: None (occurrence: None)
  Receive Date: 20050606
  Receipt Date: 20050525
  Transmission Date: 20051028
  Serious: No
  Sender: FDA-Public Use
  Company Number: 214801

PATIENT
  Age: 15 Year
  Sex: Female
  Weight: 52 kg

DRUGS (4)
  1. NUTROPIN AQ [Suspect]
     Indication: ACUTE LYMPHOCYTIC LEUKAEMIA
     Dosage: 2.8 MG, QD, SUBCUTANEOUS
     Route: 058
     Dates: start: 19990624, end: 20050414
  2. PREMARIN [Concomitant]
  3. SYNTHROID [Concomitant]
  4. ROCALTROL [Concomitant]

REACTIONS (1)
  - PAPILLARY THYROID CANCER [None]
